FAERS Safety Report 18954081 (Version 2)
Quarter: 2021Q3

REPORT INFORMATION
  Report Type: Spontaneous
  Country: US (occurrence: US)
  Receive Date: 20210301
  Receipt Date: 20210916
  Transmission Date: 20211014
  Serious: Yes (Hospitalization, Other)
  Sender: FDA-Public Use
  Company Number: US-GILEAD-2021-0517957

PATIENT
  Age: 64 Year
  Sex: Female
  Weight: 51.7 kg

DRUGS (62)
  1. ATRIPLA [Suspect]
     Active Substance: EFAVIRENZ\EMTRICITABINE\TENOFOVIR DISOPROXIL FUMARATE
     Dosage: UNK
     Route: 048
     Dates: start: 201307, end: 201905
  2. INCRUSE ELLIPTA [Concomitant]
     Active Substance: UMECLIDINIUM BROMIDE
  3. BROMPHENIRAMINE [Concomitant]
     Active Substance: BROMPHENIRAMINE
  4. DOXYCYCLINE. [Concomitant]
     Active Substance: DOXYCYCLINE
  5. LEVOFLOXACIN. [Concomitant]
     Active Substance: LEVOFLOXACIN
  6. LIDODERM [Concomitant]
     Active Substance: LIDOCAINE
  7. MUPIROCIN. [Concomitant]
     Active Substance: MUPIROCIN
  8. PENICILLIN [BENZYLPENICILLIN] [Concomitant]
     Active Substance: PENICILLIN G
  9. PREMARIN [Concomitant]
     Active Substance: ESTROGENS, CONJUGATED
  10. ZOLOFT [Concomitant]
     Active Substance: SERTRALINE HYDROCHLORIDE
  11. SPIRIVA [Concomitant]
     Active Substance: TIOTROPIUM BROMIDE MONOHYDRATE
  12. SUPREP BOWEL PREP [Concomitant]
     Active Substance: MAGNESIUM SULFATE\POTASSIUM SULFATE\SODIUM SULFATE
  13. ADVAIR HFA [Concomitant]
     Active Substance: FLUTICASONE PROPIONATE\SALMETEROL XINAFOATE
  14. CEFDINIR. [Concomitant]
     Active Substance: CEFDINIR
  15. CHANTIX [Concomitant]
     Active Substance: VARENICLINE TARTRATE
  16. CIPROFLOXACIN. [Concomitant]
     Active Substance: CIPROFLOXACIN
  17. ERY [ERYTHROMYCIN] [Concomitant]
     Active Substance: ERYTHROMYCIN
  18. VENTOLIN HFA [Concomitant]
     Active Substance: ALBUTEROL SULFATE
  19. CARBAMAZEPINE. [Concomitant]
     Active Substance: CARBAMAZEPINE
  20. ALBUTEROL HFA [Concomitant]
     Active Substance: ALBUTEROL SULFATE
  21. DEXILANT [Concomitant]
     Active Substance: DEXLANSOPRAZOLE
  22. INCRUSE ELLIPTA [Concomitant]
     Active Substance: UMECLIDINIUM BROMIDE
  23. METRONIDAZOLE. [Concomitant]
     Active Substance: METRONIDAZOLE
  24. MONTELUKAST [Concomitant]
     Active Substance: MONTELUKAST SODIUM
  25. DESCOVY [Concomitant]
     Active Substance: EMTRICITABINE\TENOFOVIR ALAFENAMIDE FUMARATE
  26. PROAIR HFA [Concomitant]
     Active Substance: ALBUTEROL SULFATE
  27. SYMBICORT [Concomitant]
     Active Substance: BUDESONIDE\FORMOTEROL FUMARATE DIHYDRATE
  28. BENZONATATE. [Concomitant]
     Active Substance: BENZONATATE
  29. CLINDAMYCIN. [Concomitant]
     Active Substance: CLINDAMYCIN
  30. COMBIVENT [Concomitant]
     Active Substance: ALBUTEROL SULFATE\IPRATROPIUM BROMIDE
  31. ESOMEPRAZOLE. [Concomitant]
     Active Substance: ESOMEPRAZOLE MAGNESIUM
  32. HYDROMET [HYDROCHLOROTHIAZIDE;METHYLDOPA] [Concomitant]
  33. LIDOCAINE. [Concomitant]
     Active Substance: LIDOCAINE
  34. TERBINAFINE. [Concomitant]
     Active Substance: TERBINAFINE
  35. TRAZODONE [Concomitant]
     Active Substance: TRAZODONE HYDROCHLORIDE
  36. BREO ELLIPTA [Concomitant]
     Active Substance: FLUTICASONE FUROATE\VILANTEROL TRIFENATATE
  37. ARIPIPRAZOLE. [Concomitant]
     Active Substance: ARIPIPRAZOLE
  38. AMOXICILLIN. [Concomitant]
     Active Substance: AMOXICILLIN
  39. ANORO ELLIPTA [Concomitant]
     Active Substance: UMECLIDINIUM BROMIDE\VILANTEROL TRIFENATATE
  40. AVELOX [Concomitant]
     Active Substance: MOXIFLOXACIN HYDROCHLORIDE
  41. CLONAZEPAM. [Concomitant]
     Active Substance: CLONAZEPAM
  42. FLUTICASONE. [Concomitant]
     Active Substance: FLUTICASONE
  43. MALATHION. [Concomitant]
     Active Substance: MALATHION
  44. NASONEX [Concomitant]
     Active Substance: MOMETASONE FUROATE
  45. TRAMADOL. [Concomitant]
     Active Substance: TRAMADOL
  46. ATRIPLA [Suspect]
     Active Substance: EFAVIRENZ\EMTRICITABINE\TENOFOVIR DISOPROXIL FUMARATE
     Indication: HIV INFECTION
     Dosage: UNK
     Route: 048
     Dates: start: 2013
  47. TIVICAY [Concomitant]
     Active Substance: DOLUTEGRAVIR SODIUM
  48. TRELEGY ELLIPTA [Concomitant]
     Active Substance: FLUTICASONE FUROATE\UMECLIDINIUM BROMIDE\VILANTEROL TRIFENATATE
  49. ATRIPLA [Suspect]
     Active Substance: EFAVIRENZ\EMTRICITABINE\TENOFOVIR DISOPROXIL FUMARATE
     Dosage: UNK
     Route: 048
     Dates: start: 201307, end: 201904
  50. CLOTRIMAZOLE. [Concomitant]
     Active Substance: CLOTRIMAZOLE
  51. IBUPROFEN. [Concomitant]
     Active Substance: IBUPROFEN
  52. IPRATROPIUM/ALBUTEROL [Concomitant]
     Active Substance: ALBUTEROL\IPRATROPIUM
  53. LEVOCETIRIZINE [Concomitant]
     Active Substance: LEVOCETIRIZINE
  54. MELOXICAM. [Concomitant]
     Active Substance: MELOXICAM
  55. SULFAMETHOXAZOLE [Concomitant]
     Active Substance: SULFAMETHOXAZOLE
  56. THEOPHYLLINE [Concomitant]
     Active Substance: THEOPHYLLINE ANHYDROUS
  57. AZITHROMYCIN ANHYDROUS. [Concomitant]
     Active Substance: AZITHROMYCIN ANHYDROUS
  58. GABAPENTIN. [Concomitant]
     Active Substance: GABAPENTIN
  59. HYDROCODONE [Concomitant]
     Active Substance: HYDROCODONE
  60. PREDNISONE. [Concomitant]
     Active Substance: PREDNISONE
  61. PROMETHAZINE [Concomitant]
     Active Substance: PROMETHAZINE HYDROCHLORIDE
  62. TRIAMTERENE. [Concomitant]
     Active Substance: TRIAMTERENE

REACTIONS (14)
  - Femoral neck fracture [Recovered/Resolved]
  - Depression [Not Recovered/Not Resolved]
  - Gait disturbance [Unknown]
  - Loss of personal independence in daily activities [Unknown]
  - Osteoporosis [Not Recovered/Not Resolved]
  - Emotional distress [Not Recovered/Not Resolved]
  - Vitamin D decreased [Unknown]
  - Anhedonia [Not Recovered/Not Resolved]
  - Dysstasia [Unknown]
  - Fatigue [Unknown]
  - Pneumonia [Unknown]
  - Bone density decreased [Unknown]
  - Pain [Not Recovered/Not Resolved]
  - Anxiety [Unknown]

NARRATIVE: CASE EVENT DATE: 2017
